FAERS Safety Report 16827219 (Version 2)
Quarter: 2019Q3

REPORT INFORMATION
  Report Type: Report from Study
  Country: BR (occurrence: BR)
  Receive Date: 20190919
  Receipt Date: 20190924
  Transmission Date: 20191005
  Serious: Yes (Other)
  Sender: FDA-Public Use
  Company Number: BR-VIIV HEALTHCARE LIMITED-BR2019AMR166935

PATIENT
  Age: 35 Year
  Sex: Male

DRUGS (2)
  1. DOLUTEGRAVIR [Suspect]
     Active Substance: DOLUTEGRAVIR
     Indication: HIV TEST POSITIVE
     Dosage: UNK
  2. DARUNAVIR [Suspect]
     Active Substance: DARUNAVIR
     Indication: HIV TEST POSITIVE
     Dosage: UNK

REACTIONS (2)
  - Dermatitis allergic [Unknown]
  - Drug reaction with eosinophilia and systemic symptoms [Unknown]
